FAERS Safety Report 12140504 (Version 3)
Quarter: 2018Q4

REPORT INFORMATION
  Report Type: Spontaneous
  Country: FR (occurrence: FR)
  Receive Date: 20160303
  Receipt Date: 20180910
  Transmission Date: 20190204
  Serious: Yes (Death, Hospitalization, Other)
  Sender: FDA-Public Use
  Company Number: FR-GLAXOSMITHKLINE-FR2016GSK021467

PATIENT
  Sex: Male

DRUGS (9)
  1. METOJECT [Suspect]
     Active Substance: METHOTREXATE SODIUM
     Indication: PSORIASIS
     Dosage: UNK
     Route: 058
     Dates: start: 201110
  2. SORIATANE [Suspect]
     Active Substance: ACITRETIN
     Indication: PSORIASIS
     Dosage: UNK UNK, Z
     Route: 048
     Dates: start: 1999, end: 201110
  3. METOJECT [Suspect]
     Active Substance: METHOTREXATE SODIUM
     Dosage: 15 MG, WEEKLY
     Route: 058
     Dates: end: 201112
  4. SORIATANE [Suspect]
     Active Substance: ACITRETIN
     Dosage: 50 MG, QD
     Route: 048
     Dates: start: 1999, end: 2011
  5. TAHOR [Concomitant]
     Active Substance: ATORVASTATIN CALCIUM
     Indication: PRODUCT USED FOR UNKNOWN INDICATION
     Dosage: 1 DF, UNK
     Route: 048
  6. DERMOVAL (CLOBETASOL PROPIONATE) [Suspect]
     Active Substance: CLOBETASOL PROPIONATE
     Indication: PSORIASIS
     Dosage: UNK
     Route: 003
     Dates: start: 1999, end: 2012
  7. ENBREL [Suspect]
     Active Substance: ETANERCEPT
     Indication: PSORIASIS
     Dosage: 50 MG, CYC
     Route: 058
     Dates: start: 201203, end: 201210
  8. METOJECT [Suspect]
     Active Substance: METHOTREXATE SODIUM
     Dosage: 20 MG, UNK, WEEKLY
     Route: 058
     Dates: start: 201112, end: 20120104
  9. SORIATANE [Suspect]
     Active Substance: ACITRETIN
     Dosage: 20-50 MG DAILY
     Route: 048
     Dates: start: 1999, end: 2011

REACTIONS (3)
  - Acute myeloid leukaemia [Fatal]
  - Drug effect incomplete [Unknown]
  - Neutrophil count decreased [Unknown]
